FAERS Safety Report 15747340 (Version 1)
Quarter: 2018Q4

REPORT INFORMATION
  Report Type: Spontaneous
  Country: US (occurrence: US)
  Receive Date: 20181220
  Receipt Date: 20181220
  Transmission Date: 20190205
  Serious: No
  Sender: FDA-Public Use
  Company Number: US-AVADEL SPECIALTY PHARMACEUTICALS, LLC-2018AVA00445

PATIENT
  Age: 91 Year
  Sex: Male
  Weight: 72.56 kg

DRUGS (16)
  1. TRAZODONE [Concomitant]
     Active Substance: TRAZODONE HYDROCHLORIDE
  2. BENADRYL [Concomitant]
     Active Substance: DIPHENHYDRAMINE HYDROCHLORIDE
  3. PANTOPRAZOLE SOD-DR [Concomitant]
     Dosage: 40 MG, 1X/DAY
  4. BABY ASPIRIN [Concomitant]
     Active Substance: ASPIRIN
  5. CLONAZEPAM. [Concomitant]
     Active Substance: CLONAZEPAM
     Dosage: 1 MG, 1X/DAY
  6. FISH OIL [Concomitant]
     Active Substance: FISH OIL
  7. TURMERIC [Concomitant]
     Active Substance: HERBALS\TURMERIC
  8. METOPROLOL. [Concomitant]
     Active Substance: METOPROLOL
     Dosage: 12.5 MG, 2X/DAY IN THE MORNING AND AT NIGHT
  9. VITAMIN D3 [Concomitant]
     Active Substance: CHOLECALCIFEROL
  10. CENTRUM MULTIVITAMIN [Concomitant]
  11. TWO UNSPECIFIED STOOL SOFTENERS [Concomitant]
  12. SLO-NIACIN [Concomitant]
     Active Substance: NIACIN
  13. NOCTIVA [Suspect]
     Active Substance: DESMOPRESSIN ACETATE
     Indication: NOCTURIA
     Dosage: 0.83 ?G, 1X/DAY APPROXIMATELY 30 MINUTES BEFORE BED
     Route: 045
     Dates: start: 20181017
  14. KELP [Concomitant]
     Active Substance: KELP
  15. MELATONIN [Concomitant]
     Active Substance: MELATONIN
     Dosage: 10 MG, 1X/DAY AT NIGHT
  16. OMEGA 3 [Concomitant]
     Active Substance: OMEGA-3 FATTY ACIDS

REACTIONS (4)
  - Product preparation issue [Not Recovered/Not Resolved]
  - Product storage error [Recovered/Resolved]
  - Drug ineffective [Not Recovered/Not Resolved]
  - Nocturia [Not Recovered/Not Resolved]

NARRATIVE: CASE EVENT DATE: 201810
